FAERS Safety Report 21075507 (Version 2)
Quarter: 2022Q3

REPORT INFORMATION
  Report Type: Spontaneous
  Country: DE (occurrence: DE)
  Receive Date: 20220713
  Receipt Date: 20220720
  Transmission Date: 20221026
  Serious: Yes (Life-Threatening, Hospitalization, Other)
  Sender: FDA-Public Use
  Company Number: DE-TORRENT-00022777

PATIENT
  Age: 22 Year
  Sex: Female

DRUGS (1)
  1. VENLAFAXINE [Suspect]
     Active Substance: VENLAFAXINE HYDROCHLORIDE
     Indication: Product used for unknown indication
     Dosage: 22.5 G
     Route: 048

REACTIONS (4)
  - Intentional overdose [Unknown]
  - Mydriasis [Recovered/Resolved]
  - Ventricular fibrillation [Recovered/Resolved]
  - Multi-organ disorder [Recovering/Resolving]
